FAERS Safety Report 13951654 (Version 2)
Quarter: 2018Q1

REPORT INFORMATION
  Report Type: Spontaneous
  Country: US (occurrence: US)
  Receive Date: 20170908
  Receipt Date: 20180105
  Transmission Date: 20180508
  Serious: Yes (Hospitalization)
  Sender: FDA-Public Use
  Company Number: US-DSJP-DSU-2017-136099

PATIENT

DRUGS (1)
  1. TRIBENZOR [Suspect]
     Active Substance: AMLODIPINE BESYLATE\HYDROCHLOROTHIAZIDE\OLMESARTAN MEDOXOMIL
     Indication: HYPERTENSION
     Dosage: 40/5/25 MG, QD
     Route: 048
     Dates: start: 20130328, end: 20150601

REACTIONS (5)
  - Weight decreased [Unknown]
  - Hypomagnesaemia [Recovered/Resolved]
  - Pancreatitis acute [Recovered/Resolved]
  - Hypokalaemia [Recovered/Resolved]
  - Diarrhoea [Recovered/Resolved]

NARRATIVE: CASE EVENT DATE: 20130329
